FAERS Safety Report 8255628 (Version 9)
Quarter: 2012Q4

REPORT INFORMATION
  Report Type: Report from Study
  Country: RU (occurrence: RU)
  Receive Date: 20111118
  Receipt Date: 20121214
  Transmission Date: 20130627
  Serious: Yes (Death, Hospitalization)
  Sender: FDA-Public Use
  Company Number: RU-ROCHE-1012680

PATIENT
  Age: 62 Year
  Sex: Female
  Weight: 86.4 kg

DRUGS (29)
  1. TOCILIZUMAB [Suspect]
     Indication: RHEUMATOID ARTHRITIS
     Dosage: Date of recent dose prior to SAE: 04 OCT 2011
     Route: 058
     Dates: start: 20110614
  2. TOCILIZUMAB [Suspect]
     Indication: RHEUMATOID ARTHRITIS
     Route: 042
     Dates: start: 20111206
  3. TOCILIZUMAB [Suspect]
     Indication: RHEUMATOID ARTHRITIS
     Dosage: Date of last dose prior to SAE: 04 OCT 2011
     Route: 042
     Dates: start: 20110614
  4. METHOTREXATE [Concomitant]
     Indication: RHEUMATOID ARTHRITIS
     Route: 048
     Dates: start: 20110715, end: 20111007
  5. METHOTREXATE [Concomitant]
     Route: 048
     Dates: start: 20111008
  6. PREDNISOLONE [Concomitant]
     Indication: RHEUMATOID ARTHRITIS
     Route: 048
     Dates: start: 20070815
  7. NIMESULIDE [Concomitant]
     Indication: RHEUMATOID ARTHRITIS
     Route: 048
     Dates: start: 20050608
  8. FOLIC ACID [Concomitant]
     Route: 048
  9. RHEOPOLYGLUCIN [Concomitant]
     Route: 047
     Dates: start: 20111031, end: 20111106
  10. RHEOPOLYGLUCIN [Concomitant]
     Route: 042
     Dates: start: 20111031, end: 20111104
  11. DEXAMETHASONE [Concomitant]
     Route: 047
     Dates: start: 20111031, end: 20111106
  12. DEXAMETHASONE [Concomitant]
     Dosage: 2 drops
     Route: 047
     Dates: start: 20111031, end: 20111111
  13. HEPARIN [Concomitant]
     Route: 047
     Dates: start: 20111031, end: 20111106
  14. PENTOXIFYLLINE [Concomitant]
     Route: 047
     Dates: start: 20111031, end: 20111104
  15. PENTOXIFYLLINE [Concomitant]
     Route: 042
     Dates: start: 20111031, end: 20111104
  16. PAPAVERINE [Concomitant]
     Route: 047
     Dates: start: 20111031, end: 20111105
  17. PAPAVERINE [Concomitant]
     Route: 030
     Dates: start: 20111031, end: 20111109
  18. METHYLETHYLPIRIDINOL [Concomitant]
     Dosage: 2 drops
     Route: 047
     Dates: start: 20111031
  19. ARUTIMOL [Concomitant]
     Dosage: 2 drops
     Route: 047
     Dates: start: 20111031, end: 20111111
  20. NICOTINIC ACID [Concomitant]
     Dosage: intranasal
     Route: 065
     Dates: start: 20111031, end: 20111109
  21. NICOTINIC ACID [Concomitant]
     Route: 030
     Dates: start: 20111031, end: 20111109
  22. ACETYLSALICYLIC ACID [Concomitant]
     Route: 048
     Dates: start: 20100531
  23. SIMVASTATIN [Concomitant]
     Route: 048
     Dates: start: 20101208
  24. FOSINOPRIL [Concomitant]
     Route: 048
     Dates: start: 20101208
  25. INDAPAMIDE [Concomitant]
     Route: 048
     Dates: start: 20101208
  26. TORASEMIDE [Concomitant]
     Route: 048
     Dates: start: 20101208
  27. AMLODIPIN [Concomitant]
     Route: 048
     Dates: start: 20101208
  28. AMIODARONE [Concomitant]
     Route: 048
     Dates: start: 20101208
  29. CALCITONIN [Concomitant]
     Route: 030
     Dates: start: 20101208

REACTIONS (2)
  - Ischaemic cerebral infarction [Fatal]
  - Retinal artery occlusion [Recovered/Resolved with Sequelae]
